FAERS Safety Report 9173828 (Version 7)
Quarter: 2014Q1

REPORT INFORMATION
  Report Type: Report from Study
  Country: GB (occurrence: GB)
  Receive Date: 20130320
  Receipt Date: 20140306
  Transmission Date: 20141002
  Serious: Yes (Hospitalization, Other)
  Sender: FDA-Public Use
  Company Number: BE-SANOFI-AVENTIS-2013SA025660

PATIENT
  Age: 75 Year
  Sex: Male

DRUGS (24)
  1. AFLIBERCEPT [Suspect]
     Indication: COLORECTAL CANCER METASTATIC
     Route: 041
     Dates: start: 20130208, end: 20130208
  2. AFLIBERCEPT [Suspect]
     Indication: COLORECTAL CANCER METASTATIC
     Route: 041
     Dates: start: 20130222, end: 20130222
  3. 5-FU [Suspect]
     Indication: COLORECTAL CANCER METASTATIC
     Route: 040
     Dates: start: 20130208, end: 20130208
  4. 5-FU [Suspect]
     Indication: COLORECTAL CANCER METASTATIC
     Route: 041
     Dates: start: 20130208, end: 20130208
  5. 5-FU [Suspect]
     Indication: COLORECTAL CANCER METASTATIC
     Route: 041
     Dates: start: 20130222, end: 20130222
  6. 5-FU [Suspect]
     Indication: COLORECTAL CANCER METASTATIC
     Route: 040
     Dates: start: 20130222, end: 20130222
  7. 5-FU [Suspect]
     Indication: COLORECTAL CANCER METASTATIC
     Route: 040
     Dates: start: 20130306, end: 20130306
  8. 5-FU [Suspect]
     Indication: COLORECTAL CANCER METASTATIC
     Route: 040
     Dates: start: 20130306, end: 20130306
  9. IRINOTECAN [Suspect]
     Indication: COLORECTAL CANCER METASTATIC
     Route: 041
     Dates: start: 20130208, end: 20130208
  10. IRINOTECAN [Suspect]
     Indication: COLORECTAL CANCER METASTATIC
     Route: 041
     Dates: start: 20130222, end: 20130222
  11. IRINOTECAN [Suspect]
     Indication: COLORECTAL CANCER METASTATIC
     Route: 041
     Dates: start: 20130306, end: 20130306
  12. LEUCOVORIN [Suspect]
     Indication: COLORECTAL CANCER METASTATIC
     Route: 041
     Dates: start: 20130208, end: 20130208
  13. LEUCOVORIN [Suspect]
     Indication: COLORECTAL CANCER METASTATIC
     Route: 041
     Dates: start: 20130222, end: 20130222
  14. LEUCOVORIN [Suspect]
     Indication: COLORECTAL CANCER METASTATIC
     Route: 041
     Dates: start: 20130306, end: 20130306
  15. AMLODIPINE [Suspect]
     Indication: HYPERTENSION
     Dates: start: 2006, end: 20130310
  16. LACTULOSE [Concomitant]
     Dates: start: 20130212
  17. CHLORHEXIDINE [Concomitant]
     Dates: start: 20130208
  18. SIMVASTATIN [Concomitant]
     Dates: start: 2007
  19. SENNA [Concomitant]
     Dates: start: 20130302, end: 20130303
  20. SUCRALFATE [Concomitant]
     Dates: start: 20130223
  21. CORTICOSTEROIDS [Concomitant]
     Indication: PROPHYLAXIS
     Dates: start: 20130208
  22. LANSOPRAZOLE [Concomitant]
     Dates: start: 20130208
  23. ANTISEPTICS [Concomitant]
     Dates: start: 20130208
  24. SEROTONIN ANTAGONISTS [Concomitant]
     Indication: PROPHYLAXIS
     Dates: start: 20130208

REACTIONS (2)
  - Orthostatic hypotension [Recovered/Resolved]
  - Nephrotic syndrome [Recovered/Resolved]
